APPROVED DRUG PRODUCT: ATAZANAVIR SULFATE
Active Ingredient: ATAZANAVIR SULFATE
Strength: EQ 200MG BASE
Dosage Form/Route: CAPSULE;ORAL
Application: A200626 | Product #003
Applicant: CIPLA LTD
Approved: Aug 9, 2018 | RLD: No | RS: No | Type: DISCN